FAERS Safety Report 14807512 (Version 3)
Quarter: 2018Q2

REPORT INFORMATION
  Report Type: Spontaneous
  Country: US (occurrence: US)
  Receive Date: 20180425
  Receipt Date: 20180601
  Transmission Date: 20180711
  Serious: No
  Sender: FDA-Public Use
  Company Number: PHEH2018US014979

PATIENT
  Sex: Female

DRUGS (1)
  1. EXTAVIA [Suspect]
     Active Substance: INTERFERON BETA-1B
     Indication: PRODUCT USED FOR UNKNOWN INDICATION
     Dosage: 0.3 G, UNK
     Route: 065

REACTIONS (7)
  - Incorrect dose administered [Unknown]
  - Drug ineffective [Unknown]
  - Hypoaesthesia [Unknown]
  - Device leakage [Unknown]
  - Device issue [Unknown]
  - Underdose [Unknown]
  - Skin swelling [Unknown]
